FAERS Safety Report 20556854 (Version 1)
Quarter: 2022Q1

REPORT INFORMATION
  Report Type: Spontaneous
  Country: RU (occurrence: RU)
  Receive Date: 20220307
  Receipt Date: 20220307
  Transmission Date: 20220423
  Serious: Yes (Other)
  Sender: FDA-Public Use
  Company Number: RU-ABBVIE-22K-251-4301635-00

PATIENT
  Age: 23 Year
  Sex: Female

DRUGS (1)
  1. VALPROIC ACID [Suspect]
     Active Substance: VALPROIC ACID
     Indication: Syncope
     Route: 065

REACTIONS (9)
  - Syncope [Recovering/Resolving]
  - Tongue movement disturbance [Recovering/Resolving]
  - Menstrual disorder [Recovering/Resolving]
  - Memory impairment [Recovering/Resolving]
  - Alopecia [Recovering/Resolving]
  - Erythema [Recovering/Resolving]
  - Drug ineffective [Unknown]
  - Abnormal dreams [Recovering/Resolving]
  - Depression [Recovering/Resolving]
